FAERS Safety Report 4971105-1 (Version None)
Quarter: 2006Q1

REPORT INFORMATION
  Report Type: 
  Country: None (occurrence: None)
  Receive Date: 20060228
  Receipt Date: 20050105
  Transmission Date: 20060701
  Serious: Yes (Disabling)
  Sender: FDA-Public Use
  Company Number: 002#4#2005-00006

PATIENT
  Sex: Male

DRUGS (1)
  1. REGLAN [Suspect]
     Indication: REFLUX OESOPHAGITIS
     Dosage: ORAL
     Route: 048
     Dates: start: 20000808, end: 20030718

REACTIONS (1)
  - TARDIVE DYSKINESIA [None]
